FAERS Safety Report 12057573 (Version 2)
Quarter: 2016Q1

REPORT INFORMATION
  Report Type: Spontaneous
  Country: EG (occurrence: EG)
  Receive Date: 20160210
  Receipt Date: 20160211
  Transmission Date: 20160526
  Serious: Yes (Disabling, Other)
  Sender: FDA-Public Use
  Company Number: EG-ROCHE-1708301

PATIENT
  Age: 62 Year
  Sex: Female

DRUGS (2)
  1. AVASTIN [Suspect]
     Active Substance: BEVACIZUMAB
     Indication: PRODUCT USED FOR UNKNOWN INDICATION
     Dosage: EYE INJECTION
     Route: 050
     Dates: start: 20160201
  2. CORTISONE [Concomitant]
     Active Substance: CORTISONE\HYDROCORTISONE

REACTIONS (7)
  - Medication error [Unknown]
  - Eye swelling [Not Recovered/Not Resolved]
  - Ocular hyperaemia [Unknown]
  - Blindness [Not Recovered/Not Resolved]
  - Eye irritation [Not Recovered/Not Resolved]
  - Burning sensation [Unknown]
  - Off label use [Unknown]

NARRATIVE: CASE EVENT DATE: 20160201
